FAERS Safety Report 6802099-1 (Version None)
Quarter: 2010Q2

REPORT INFORMATION
  Report Type: 
  Country: None (occurrence: None)
  Receive Date: 20100629
  Receipt Date: 20071204
  Transmission Date: 20101027
  Serious: No
  Sender: FDA-Public Use
  Company Number: US-PFIZER INC-2007063516

PATIENT
  Age: 50 Year
  Sex: Male
  Weight: 97.1 kg

DRUGS (11)
  1. VIAGRA [Suspect]
     Indication: ERECTILE DYSFUNCTION
     Dates: start: 20030101
  2. PLAVIX [Concomitant]
  3. ACETYLSALICYLIC ACID [Concomitant]
  4. DIGOXIN [Concomitant]
  5. LORAZEPAM [Concomitant]
  6. COZAAR [Concomitant]
  7. CRESTOR [Concomitant]
  8. ATENOLOL [Concomitant]
  9. GLUCOVANCE [Concomitant]
  10. NITROGLYCERIN [Concomitant]
  11. ALL OTHER THERAPEUTIC PRODUCTS [Concomitant]

REACTIONS (3)
  - DRUG INEFFECTIVE [None]
  - MIGRAINE [None]
  - PALPITATIONS [None]
